FAERS Safety Report 12428861 (Version 1)
Quarter: 2016Q2

REPORT INFORMATION
  Report Type: Spontaneous
  Country: US (occurrence: None)
  Receive Date: 20160601
  Receipt Date: 20160601
  Transmission Date: 20160815
  Serious: No
  Sender: FDA-Public Use
  Company Number: None

PATIENT
  Age: 85 Year
  Sex: Male

DRUGS (11)
  1. REVLIMID [Suspect]
     Active Substance: LENALIDOMIDE
     Indication: PLASMA CELL MYELOMA
     Route: 048
     Dates: start: 20160502, end: 20160515
  2. ALBUTEROL. [Concomitant]
     Active Substance: ALBUTEROL
  3. QVAR [Concomitant]
     Active Substance: BECLOMETHASONE DIPROPIONATE
  4. DEXAMETHASONE. [Concomitant]
     Active Substance: DEXAMETHASONE
  5. INSULIN R [Concomitant]
  6. GLIPIZIDE. [Concomitant]
     Active Substance: GLIPIZIDE
  7. METOPROLOL. [Concomitant]
     Active Substance: METOPROLOL
  8. IPRATROPIUM [Concomitant]
     Active Substance: IPRATROPIUM
  9. TERAZOSIN [Concomitant]
     Active Substance: TERAZOSIN\TERAZOSIN HYDROCHLORIDE
  10. FLONASE [Concomitant]
     Active Substance: FLUTICASONE PROPIONATE
  11. VELCADE [Concomitant]
     Active Substance: BORTEZOMIB

REACTIONS (1)
  - Rash [None]

NARRATIVE: CASE EVENT DATE: 20160531
